FAERS Safety Report 7326691-3 (Version None)
Quarter: 2011Q1

REPORT INFORMATION
  Report Type: 
  Country: None (occurrence: None)
  Receive Date: 20110302
  Receipt Date: 20110222
  Transmission Date: 20110831
  Serious: Yes (Hospitalization)
  Sender: FDA-Public Use
  Company Number: GB-ASTRAZENECA-2011SE10175

PATIENT
  Age: 31 Year
  Sex: Female

DRUGS (3)
  1. PENICILLIN [Concomitant]
  2. OMEPRAZOLE [Suspect]
     Route: 048
     Dates: start: 20110110, end: 20110115
  3. METRONIDAZOLE [Concomitant]

REACTIONS (8)
  - HYPOPHAGIA [None]
  - HEPATITIS [None]
  - LIVER FUNCTION TEST ABNORMAL [None]
  - ABDOMINAL PAIN UPPER [None]
  - SCLERAL DISCOLOURATION [None]
  - WEIGHT DECREASED [None]
  - CHROMATURIA [None]
  - VOMITING [None]
